FAERS Safety Report 8490731-9 (Version None)
Quarter: 2012Q3

REPORT INFORMATION
  Report Type: 
  Country: None (occurrence: None)
  Receive Date: 20120706
  Receipt Date: 20120627
  Transmission Date: 20120928
  Serious: Yes (Other)
  Sender: FDA-Public Use
  Company Number: JP-AMGEN-JPNSP2012038118

PATIENT
  Age: 24 Year
  Sex: Female

DRUGS (4)
  1. IBUPROFEN [Concomitant]
     Indication: ARTHRITIS
     Dosage: UNK
  2. METHOTREXATE [Concomitant]
     Indication: ARTHRITIS
     Dosage: UNK
  3. ETANERCEPT [Suspect]
     Indication: JUVENILE ARTHRITIS
     Dosage: 25 MG, WEEKLY
  4. PREDNISOLONE [Concomitant]
     Indication: ARTHRITIS
     Dosage: UNK

REACTIONS (2)
  - HYPOTHYROIDISM [None]
  - THYROIDITIS SUBACUTE [None]
